FAERS Safety Report 21986238 (Version 1)
Quarter: 2023Q1

REPORT INFORMATION
  Report Type: Spontaneous
  Country: FR (occurrence: FR)
  Receive Date: 20230213
  Receipt Date: 20230213
  Transmission Date: 20230418
  Serious: Yes (Other)
  Sender: FDA-Public Use
  Company Number: None

PATIENT
  Age: 37 Year
  Sex: Female

DRUGS (3)
  1. KETOPROFEN [Suspect]
     Active Substance: KETOPROFEN
     Indication: Product used for unknown indication
     Dosage: 20 MG 200 MG X7PER DAY
     Route: 048
  2. ZOLMITRIPTAN [Suspect]
     Active Substance: ZOLMITRIPTAN
     Indication: Product used for unknown indication
     Dosage: 5 MG,QD,5 MG/DAY(2 TABLETS OF 2.5 MG OR MORE)
     Route: 048
  3. CODEINE [Suspect]
     Active Substance: CODEINE
     Indication: Product used for unknown indication
     Dosage: 450TO600MG/DAY(15TO20CAPS OF CODEINE PARACETAMOL)
     Route: 048

REACTIONS (2)
  - Drug dependence [Unknown]
  - Overdose [Unknown]

NARRATIVE: CASE EVENT DATE: 20180101
